FAERS Safety Report 23432859 (Version 1)
Quarter: 2024Q1

REPORT INFORMATION
  Report Type: Spontaneous
  Country: US (occurrence: None)
  Receive Date: 20240123
  Receipt Date: 20240123
  Transmission Date: 20240410
  Serious: Yes (Hospitalization)
  Sender: FDA-Public Use
  Company Number: None

PATIENT
  Sex: Female

DRUGS (1)
  1. LENALIDOMIDE [Suspect]
     Active Substance: LENALIDOMIDE
     Indication: Plasma cell myeloma
     Dosage: 20MG DAILY ORAL?
     Route: 048
     Dates: start: 202310

REACTIONS (7)
  - Cellulitis [None]
  - Oedema peripheral [None]
  - Oedema peripheral [None]
  - Dry skin [None]
  - Dry skin [None]
  - Therapy interrupted [None]
  - Joint injury [None]
